FAERS Safety Report 7439747-1 (Version None)
Quarter: 2011Q2

REPORT INFORMATION
  Report Type: 
  Country: None (occurrence: None)
  Receive Date: 20110427
  Receipt Date: 20110420
  Transmission Date: 20111010
  Serious: Yes (Life-Threatening)
  Sender: FDA-Public Use
  Company Number: PHHY2011JP13946

PATIENT
  Sex: Male
  Weight: 57 kg

DRUGS (19)
  1. PURSENNID [Concomitant]
     Indication: CONSTIPATION
     Dosage: 12 MG, UNK
     Route: 048
  2. VOGLIBOSE [Concomitant]
     Indication: HYPERGLYCAEMIA
     Dosage: 0.6 MG, UNK
     Route: 048
     Dates: start: 20110301, end: 20110328
  3. MAGLAX [Concomitant]
     Indication: CONSTIPATION
     Dosage: 1320 MG, UNK
     Route: 048
  4. TASIGNA [Suspect]
     Dosage: 400 MG, UNK
     Route: 048
     Dates: start: 20110316, end: 20110318
  5. SIGMART [Concomitant]
     Indication: ANGINA PECTORIS
     Dosage: 15 MG, UNK
     Route: 048
  6. ARTIST [Concomitant]
     Indication: ANGINA PECTORIS
     Dosage: 10 MG, UNK
     Route: 048
  7. TASIGNA [Suspect]
     Dosage: 800 MG, UNK
     Route: 048
     Dates: start: 20110306, end: 20110315
  8. AMARYL [Concomitant]
     Indication: HYPERGLYCAEMIA
     Dosage: 0.5 MG, UNK
     Route: 048
     Dates: start: 20110316, end: 20110318
  9. SPIRIVA [Concomitant]
     Indication: ASTHMA
     Dosage: 1 DF, UNK
  10. CALCIUM POLYSTYRENE SULFONATE [Concomitant]
     Indication: RENAL IMPAIRMENT
     Dosage: 75 G, UNK
     Route: 048
  11. TASIGNA [Suspect]
     Dosage: 200 MG, UNK
     Route: 048
     Dates: start: 20110224, end: 20110305
  12. THYRADIN S [Concomitant]
     Indication: HYPOTHYROIDISM
     Dosage: 75 UG, UNK
     Route: 048
  13. ATELEC [Concomitant]
     Indication: HYPERTENSION
     Dosage: 10 MG, UNK
     Route: 048
  14. IRBESARTAN [Concomitant]
     Indication: HYPERTENSION
     Dosage: 50 MG, UNK
     Route: 048
  15. TASIGNA [Suspect]
     Indication: CHRONIC MYELOID LEUKAEMIA
     Dosage: 800 MG, DAILY
     Route: 048
     Dates: start: 20110211, end: 20110218
  16. BERIZYM [Concomitant]
     Dosage: 1.5 G, UNK
     Route: 048
  17. ALLOZYM [Concomitant]
     Indication: HYPERURICAEMIA
     Dosage: 100 MG, UNK
     Route: 048
  18. FLUTICASONE PROPIONATE W/SALMETEROL XINAFOATE [Concomitant]
     Indication: ASTHMA
     Dosage: 2 DF, UNK
  19. MUCOSTA [Concomitant]
     Indication: GASTRITIS PROPHYLAXIS
     Dosage: 300 MG, UNK
     Route: 048

REACTIONS (7)
  - ARRHYTHMIA [None]
  - HYPERGLYCAEMIA [None]
  - RENAL IMPAIRMENT [None]
  - ELECTROCARDIOGRAM QT PROLONGED [None]
  - VENTRICULAR EXTRASYSTOLES [None]
  - CONCOMITANT DISEASE AGGRAVATED [None]
  - CHEST DISCOMFORT [None]
